FAERS Safety Report 12355905 (Version 1)
Quarter: 2016Q2

REPORT INFORMATION
  Report Type: Spontaneous
  Country: US (occurrence: US)
  Receive Date: 20160511
  Receipt Date: 20160511
  Transmission Date: 20160815
  Serious: No
  Sender: FDA-Public Use
  Company Number: US-QOL MEDICAL, LLC-1051906

PATIENT
  Age: 54 Year
  Sex: Female
  Weight: 109.09 kg

DRUGS (6)
  1. PROTNADIM (SUPPLEMENT) [Concomitant]
  2. LOTRONEX [Concomitant]
     Active Substance: ALOSETRON HYDROCHLORIDE
  3. SUCRAID [Suspect]
     Active Substance: SACROSIDASE
     Indication: SUCRASE-ISOMALTASE DEFICIENCY
     Route: 048
     Dates: start: 20150725, end: 20150803
  4. VITAMIN D [Concomitant]
     Active Substance: CHOLECALCIFEROL
  5. FLORASTOR (SUPPLEMENT) [Concomitant]
  6. DIGESTRON (SUPPLEMENT) [Concomitant]

REACTIONS (6)
  - Abdominal distension [Recovered/Resolved]
  - Peripheral swelling [Recovered/Resolved]
  - Headache [Recovered/Resolved]
  - Peripheral swelling [None]
  - Dizziness [Recovered/Resolved]
  - Diarrhoea [Recovered/Resolved]

NARRATIVE: CASE EVENT DATE: 20150802
